FAERS Safety Report 7070091-0 (Version None)
Quarter: 2010Q4

REPORT INFORMATION
  Report Type: 
  Country: None (occurrence: None)
  Receive Date: 20101028
  Receipt Date: 20100928
  Transmission Date: 20110411
  Serious: No
  Sender: FDA-Public Use
  Company Number: US-WYE-H17063910

PATIENT
  Age: 64 Year
  Sex: Female
  Weight: 81.72 kg

DRUGS (3)
  1. ADVIL [Suspect]
     Indication: ARTHRITIS
     Dosage: 3 LIQUI-GELS EVERY SIX HOURS (DOSAGE RECOMMENDED BY PHYSICIAN)
     Route: 048
     Dates: start: 20100813
  2. ADVIL [Suspect]
     Indication: PAIN
  3. SYNTHROID [Concomitant]

REACTIONS (1)
  - DRUG INEFFECTIVE [None]
